FAERS Safety Report 9245916 (Version 4)
Quarter: 2013Q2

REPORT INFORMATION
  Report Type: Spontaneous
  Country: US (occurrence: US)
  Receive Date: 20130422
  Receipt Date: 20130626
  Transmission Date: 20140414
  Serious: No
  Sender: FDA-Public Use
  Company Number: US-PFIZER INC-2013125335

PATIENT
  Age: 59 Year
  Sex: Female

DRUGS (6)
  1. EFFEXOR [Suspect]
     Indication: DEPRESSION
     Dosage: UNK
  2. EFFEXOR [Suspect]
     Indication: ANXIETY
  3. EFFEXOR XR [Suspect]
     Indication: DEPRESSION
     Dosage: UNK
  4. EFFEXOR XR [Suspect]
     Indication: ANXIETY
  5. HYDROCODONE W/ACETAMINOPHEN [Suspect]
     Indication: TENDONITIS
     Dosage: [HYDROCODONE 10 MG]/ [ACETAMINOPHEN 325 MG], AS NEEDED
  6. HYDROCODONE W/ACETAMINOPHEN [Suspect]
     Indication: PAIN

REACTIONS (5)
  - Drug ineffective [Recovered/Resolved]
  - Therapeutic response unexpected [Recovered/Resolved]
  - Pain [Recovered/Resolved]
  - Oral mucosal blistering [Recovered/Resolved]
  - Throat irritation [Recovered/Resolved]
